FAERS Safety Report 21332271 (Version 1)
Quarter: 2022Q3

REPORT INFORMATION
  Report Type: Spontaneous
  Country: CH (occurrence: CH)
  Receive Date: 20220914
  Receipt Date: 20220914
  Transmission Date: 20221027
  Serious: Yes (Hospitalization)
  Sender: FDA-Public Use
  Company Number: None

PATIENT
  Age: 37 Year
  Sex: Female
  Weight: 66 kg

DRUGS (3)
  1. COSENTYX [Suspect]
     Active Substance: SECUKINUMAB
     Indication: Spondyloarthropathy
     Dosage: 150 MG, QW (INITIALLY FOR 4 WEEKS WEEKLY)
     Route: 058
     Dates: start: 20220401, end: 20220603
  2. COSENTYX [Suspect]
     Active Substance: SECUKINUMAB
     Dosage: 150 MG, QMO
     Route: 065
  3. ADALIMUMAB [Suspect]
     Active Substance: ADALIMUMAB
     Indication: Spondyloarthropathy
     Dosage: UNK
     Route: 065
     Dates: start: 202111, end: 202203

REACTIONS (1)
  - Aspergillus infection [Not Recovered/Not Resolved]

NARRATIVE: CASE EVENT DATE: 20220808
